FAERS Safety Report 17039833 (Version 1)
Quarter: 2019Q4

REPORT INFORMATION
  Report Type: Spontaneous
  Country: IT (occurrence: IT)
  Receive Date: 20191116
  Receipt Date: 20191116
  Transmission Date: 20200122
  Serious: Yes (Other)
  Sender: FDA-Public Use
  Company Number: IT-ACCORD-161127

PATIENT
  Age: 90 Year
  Sex: Female

DRUGS (8)
  1. EZETIMIBE. [Concomitant]
     Active Substance: EZETIMIBE
  2. ESOMEPRAZOLE/ESOMEPRAZOLE MAGNESIUM/ESOMEPRAZOLE SODIUM [Concomitant]
  3. PAROXETINE. [Concomitant]
     Active Substance: PAROXETINE
  4. KANRENOL [Concomitant]
     Active Substance: CANRENOATE POTASSIUM
  5. ENOXAPARIN [Concomitant]
     Active Substance: ENOXAPARIN
  6. DELTACORTENE [Concomitant]
     Active Substance: PREDNISONE
  7. FUROSEMIDE. [Suspect]
     Active Substance: FUROSEMIDE
     Indication: HYPERTENSION
     Route: 048
     Dates: start: 20190101, end: 20190926
  8. PRAMIPEXOLE/PRAMIPEXOLE DIHYDROCHLORIDE [Concomitant]

REACTIONS (4)
  - Hypotension [Recovering/Resolving]
  - Sopor [Recovering/Resolving]
  - Unresponsive to stimuli [Recovering/Resolving]
  - Dehydration [Recovering/Resolving]

NARRATIVE: CASE EVENT DATE: 20190926
